FAERS Safety Report 10201090 (Version 1)
Quarter: 2014Q2

REPORT INFORMATION
  Report Type: Report from Study
  Country: BE (occurrence: BE)
  Receive Date: 20140528
  Receipt Date: 20140528
  Transmission Date: 20141212
  Serious: Yes (Other)
  Sender: FDA-Public Use
  Company Number: BE-US-EMD SERONO, INC.-7294194

PATIENT
  Sex: Male

DRUGS (3)
  1. REBIF [Suspect]
     Indication: MULTIPLE SCLEROSIS
     Route: 058
  2. REBIF [Suspect]
     Route: 058
  3. ACETYLSALICYLIC ACID [Suspect]
     Indication: INFLUENZA LIKE ILLNESS

REACTIONS (3)
  - Renal impairment [Unknown]
  - Hypertension [Unknown]
  - Influenza like illness [Not Recovered/Not Resolved]
